FAERS Safety Report 14630839 (Version 1)
Quarter: 2018Q1

REPORT INFORMATION
  Report Type: Spontaneous
  Country: IT (occurrence: IT)
  Receive Date: 20180313
  Receipt Date: 20180313
  Transmission Date: 20180509
  Serious: Yes (Life-Threatening, Other)
  Sender: FDA-Public Use
  Company Number: IT-MYLANLABS-2018M1014755

PATIENT
  Age: 79 Year
  Sex: Female

DRUGS (2)
  1. TRIAZOLAM. [Suspect]
     Active Substance: TRIAZOLAM
     Indication: PRODUCT USED FOR UNKNOWN INDICATION
     Dosage: 50 DF, TOTAL
     Dates: start: 20171216, end: 20171216
  2. OXICODONE CLORIDRATO/PARACETAMOLO [Suspect]
     Active Substance: ACETAMINOPHEN\OXYCODONE HYDROCHLORIDE
     Indication: PRODUCT USED FOR UNKNOWN INDICATION
     Dosage: 50 DF, TOTAL
     Route: 048
     Dates: start: 20171216, end: 20171216

REACTIONS (3)
  - Drug abuse [Unknown]
  - Hypothermia [Unknown]
  - Coma [Unknown]

NARRATIVE: CASE EVENT DATE: 20171216
